FAERS Safety Report 25962283 (Version 1)
Quarter: 2025Q4

REPORT INFORMATION
  Report Type: Spontaneous
  Country: EU (occurrence: EU)
  Receive Date: 20251027
  Receipt Date: 20251027
  Transmission Date: 20260117
  Serious: Yes (Hospitalization)
  Sender: MYLAN
  Company Number: None

PATIENT
  Age: 57 Year
  Sex: Female

DRUGS (4)
  1. AMIODARONE [Suspect]
     Active Substance: AMIODARONE
     Indication: Product used for unknown indication
     Dosage: UNK, QD (2 TABLETS/DAY FOR 2 DAYS, THEN 1 TABLET/DAY)
     Dates: start: 20250915, end: 20250917
  2. AMIODARONE [Suspect]
     Active Substance: AMIODARONE
     Dosage: UNK, QD (2 TABLETS/DAY FOR 2 DAYS, THEN 1 TABLET/DAY)
     Route: 048
     Dates: start: 20250915, end: 20250917
  3. AMIODARONE [Suspect]
     Active Substance: AMIODARONE
     Dosage: UNK, QD (2 TABLETS/DAY FOR 2 DAYS, THEN 1 TABLET/DAY)
     Route: 048
     Dates: start: 20250915, end: 20250917
  4. AMIODARONE [Suspect]
     Active Substance: AMIODARONE
     Dosage: UNK, QD (2 TABLETS/DAY FOR 2 DAYS, THEN 1 TABLET/DAY)
     Dates: start: 20250915, end: 20250917

REACTIONS (4)
  - Oedema peripheral [Not Recovered/Not Resolved]
  - Urticaria [Not Recovered/Not Resolved]
  - Rash [Not Recovered/Not Resolved]
  - Pruritus [Not Recovered/Not Resolved]

NARRATIVE: CASE EVENT DATE: 20250917
